FAERS Safety Report 23673163 (Version 1)
Quarter: 2024Q1

REPORT INFORMATION
  Report Type: Report from Study
  Country: US (occurrence: US)
  Receive Date: 20240326
  Receipt Date: 20240326
  Transmission Date: 20240410
  Serious: Yes (Other)
  Sender: FDA-Public Use
  Company Number: US-JNJFOC-20240331673

PATIENT

DRUGS (3)
  1. INVEGA SUSTENNA [Suspect]
     Active Substance: PALIPERIDONE PALMITATE
     Indication: Schizophrenia
     Dosage: DAY 1
     Route: 030
  2. INVEGA SUSTENNA [Suspect]
     Active Substance: PALIPERIDONE PALMITATE
     Dosage: DAY 8
     Route: 030
  3. INVEGA SUSTENNA [Suspect]
     Active Substance: PALIPERIDONE PALMITATE

REACTIONS (20)
  - Suicidal ideation [Unknown]
  - Dystonia [Unknown]
  - Injection site reaction [Unknown]
  - Dyskinesia [Unknown]
  - Weight increased [Unknown]
  - Oromandibular dystonia [Unknown]
  - Sedation [Unknown]
  - Hypotension [Unknown]
  - Parkinsonism [Unknown]
  - Akathisia [Unknown]
  - Blood prolactin increased [Unknown]
  - Injection site vesicles [Unknown]
  - Injection site pain [Unknown]
  - Injection site hypoaesthesia [Unknown]
  - Injection site pruritus [Unknown]
  - Injection site swelling [Unknown]
  - Drooling [Unknown]
  - Extrapyramidal disorder [Unknown]
  - Muscle twitching [Unknown]
  - Musculoskeletal stiffness [Unknown]
